FAERS Safety Report 9818606 (Version 3)
Quarter: 2014Q1

REPORT INFORMATION
  Report Type: Spontaneous
  Country: US (occurrence: US)
  Receive Date: 20140115
  Receipt Date: 20140307
  Transmission Date: 20141002
  Serious: No
  Sender: FDA-Public Use
  Company Number: US-009507513-1401USA005305

PATIENT
  Age: 20 Year
  Sex: Female
  Weight: 112.93 kg

DRUGS (2)
  1. NEXPLANON [Suspect]
     Dosage: UNK
     Route: 059
     Dates: start: 20140108, end: 20140108
  2. NEXPLANON [Suspect]
     Dosage: UNK
     Route: 059
     Dates: start: 20140108

REACTIONS (2)
  - Device difficult to use [Not Recovered/Not Resolved]
  - Product quality issue [Unknown]
